FAERS Safety Report 20481362 (Version 1)
Quarter: 2022Q1

REPORT INFORMATION
  Report Type: Report from Study
  Country: CA (occurrence: CA)
  Receive Date: 20220216
  Receipt Date: 20220216
  Transmission Date: 20220424
  Serious: Yes (Hospitalization)
  Sender: FDA-Public Use
  Company Number: CA-BIOGEN-2022BI01091528

PATIENT
  Age: 61 Year
  Sex: Male

DRUGS (1)
  1. TECFIDERA [Suspect]
     Active Substance: DIMETHYL FUMARATE
     Indication: Relapsing-remitting multiple sclerosis
     Dosage: MAINTENANCE DOSE
     Route: 048
     Dates: start: 20130909

REACTIONS (11)
  - Hypotension [Unknown]
  - Compression fracture [Unknown]
  - Fall [Recovered/Resolved]
  - Buttock injury [Unknown]
  - Dizziness [Unknown]
  - Spinal pain [Unknown]
  - Confusional state [Unknown]
  - Intentional product misuse [Unknown]
  - Fluid intake reduced [Unknown]
  - Pain [Unknown]
  - Nausea [Unknown]

NARRATIVE: CASE EVENT DATE: 20210701
